FAERS Safety Report 23203201 (Version 1)
Quarter: 2023Q4

REPORT INFORMATION
  Report Type: Spontaneous
  Country: US (occurrence: None)
  Receive Date: 20231119
  Receipt Date: 20231119
  Transmission Date: 20240109
  Serious: No
  Sender: FDA-Public Use
  Company Number: None

PATIENT
  Age: 68 Year
  Sex: Female
  Weight: 69.3 kg

DRUGS (5)
  1. RESTASIS [Suspect]
     Active Substance: CYCLOSPORINE
     Indication: Dry eye
     Dosage: OTHER QUANTITY : 1 DROP(S);?FREQUENCY : TWICE A DAY;?
     Route: 047
     Dates: start: 20231016, end: 20231110
  2. OXAPROZIN [Concomitant]
     Active Substance: OXAPROZIN
  3. ATORVASTATIN [Concomitant]
     Active Substance: ATORVASTATIN
  4. Mulit-vitamin [Concomitant]
  5. VITAMIN D [Concomitant]
     Active Substance: VITAMIN D NOS

REACTIONS (4)
  - Swelling of eyelid [None]
  - Urticaria [None]
  - Eye pain [None]
  - Eye pruritus [None]

NARRATIVE: CASE EVENT DATE: 20231110
